FAERS Safety Report 20942534 (Version 1)
Quarter: 2022Q2

REPORT INFORMATION
  Report Type: Spontaneous
  Country: RO (occurrence: None)
  Receive Date: 20220610
  Receipt Date: 20220610
  Transmission Date: 20220721
  Serious: Yes (Death)
  Sender: FDA-Public Use
  Company Number: RO-ROCHE-3113493

PATIENT
  Age: 26 Year
  Sex: Female

DRUGS (3)
  1. POLIVY [Suspect]
     Active Substance: POLATUZUMAB VEDOTIN-PIIQ
     Indication: Diffuse large B-cell lymphoma
     Dosage: 1.8 MG/KG/BODY AT 28 DAYS
     Route: 042
  2. RITUXIMAB [Suspect]
     Active Substance: RITUXIMAB
     Indication: Diffuse large B-cell lymphoma
     Dosage: 1.8 MG/KG/BODY AT 28 DAYS
     Route: 065
  3. BENDAMUSTINE [Suspect]
     Active Substance: BENDAMUSTINE
     Indication: Diffuse large B-cell lymphoma
     Dosage: 1.8 MG/KG/BODY AT 28 DAYS
     Route: 065

REACTIONS (1)
  - Immunosuppression [Fatal]
